FAERS Safety Report 5472202-7 (Version None)
Quarter: 2007Q3

REPORT INFORMATION
  Report Type: 
  Country: None (occurrence: None)
  Receive Date: 20070926
  Receipt Date: 20070913
  Transmission Date: 20080115
  Serious: Yes (Death)
  Sender: FDA-Public Use
  Company Number: 20074078

PATIENT
  Sex: Male

DRUGS (6)
  1. LIORESAL [Suspect]
     Indication: MUSCLE SPASTICITY
     Dosage: 1299.2 - 1300 MCG, DAILY, INTRATHEC
     Route: 037
  2. TRILEPTAL [Concomitant]
  3. PRILOSEC [Concomitant]
  4. SODIUM FLUORIDE CHEW [Concomitant]
  5. COGENTIN [Concomitant]
  6. PROPRANOLOL [Concomitant]

REACTIONS (6)
  - AFFECTIVE DISORDER [None]
  - CARDIAC FAILURE [None]
  - CENTRAL PAIN SYNDROME [None]
  - CEREBRAL PALSY [None]
  - OPISTHOTONUS [None]
  - SCOLIOSIS [None]
